FAERS Safety Report 21839129 (Version 1)
Quarter: 2023Q1

REPORT INFORMATION
  Report Type: Spontaneous
  Country: US (occurrence: US)
  Receive Date: 20230109
  Receipt Date: 20230109
  Transmission Date: 20230418
  Serious: Yes (Hospitalization)
  Sender: FDA-Public Use
  Company Number: US-JUBILANT CADISTA PHARMACEUTICALS-2022JUB00511

PATIENT
  Age: 57 Year
  Sex: Male

DRUGS (4)
  1. MYCOPHENOLATE SODIUM [Suspect]
     Active Substance: MYCOPHENOLATE SODIUM
     Indication: Immunosuppression
  2. PREDNISONE [Suspect]
     Active Substance: PREDNISONE
     Indication: Immunosuppression
  3. METHOTREXATE LEFLUNOMIDE [Concomitant]
     Indication: Immunosuppression
  4. RITUXIMAB [Concomitant]
     Active Substance: RITUXIMAB
     Indication: Immunosuppression

REACTIONS (4)
  - Hyperammonaemia [Recovering/Resolving]
  - New onset refractory status epilepticus [Recovered/Resolved]
  - Brain oedema [Not Recovered/Not Resolved]
  - Ureaplasma infection [Not Recovered/Not Resolved]
